FAERS Safety Report 22076063 (Version 1)
Quarter: 2023Q1

REPORT INFORMATION
  Report Type: Spontaneous
  Country: BR (occurrence: BR)
  Receive Date: 20230308
  Receipt Date: 20230308
  Transmission Date: 20230417
  Serious: Yes (Hospitalization)
  Sender: FDA-Public Use
  Company Number: BR-CELLTRION INC.-2023BR004831

PATIENT

DRUGS (1)
  1. INFLIXIMAB [Suspect]
     Active Substance: INFLIXIMAB
     Indication: Psoriasis
     Dosage: 4 OR 5 INFUSIONS AGO, 3 AMPOULES EVERY 54 DAYS
     Route: 042

REACTIONS (9)
  - Pain [Unknown]
  - Mobility decreased [Unknown]
  - Skin burning sensation [Unknown]
  - Fear [Unknown]
  - Mental disorder [Unknown]
  - Product availability issue [Unknown]
  - Therapy interrupted [Unknown]
  - Off label use [Unknown]
  - Off label use [Unknown]

NARRATIVE: CASE EVENT DATE: 20230220
